FAERS Safety Report 6268253-5 (Version None)
Quarter: 2009Q3

REPORT INFORMATION
  Report Type: 
  Country: None (occurrence: None)
  Receive Date: 20090713
  Receipt Date: 20090713
  Transmission Date: 20100115
  Serious: No
  Sender: FDA-Public Use
  Company Number: None

PATIENT
  Age: 20 Year
  Sex: Male
  Weight: 77.1115 kg

DRUGS (3)
  1. LEXAPRO [Suspect]
     Indication: ANXIETY
     Dosage: NORMAL 1 DOSE
  2. LEXAPRO [Suspect]
     Indication: DEPRESSION
     Dosage: NORMAL 1 DOSE
  3. ATIVAN [Concomitant]

REACTIONS (2)
  - FRUSTRATION [None]
  - SUICIDAL IDEATION [None]
